FAERS Safety Report 8884252 (Version 1)
Quarter: 2012Q4

REPORT INFORMATION
  Report Type: 
  Country: US (occurrence: US)
  Receive Date: 20121102
  Receipt Date: 20121102
  Transmission Date: 20130627
  Serious: No
  Sender: FDA-Public Use
  Company Number: US-ASTRAZENECA-2012SE23842

PATIENT
  Age: 52 Year
  Sex: Female
  Weight: 84.4 kg

DRUGS (5)
  1. NEXIUM [Suspect]
     Indication: GASTROOESOPHAGEAL REFLUX DISEASE
     Route: 048
  2. PRILOSEC [Suspect]
     Dosage: 2 CAPSULES AT ONE TIME
     Route: 048
  3. PRILOSEC [Suspect]
     Dosage: TAKE ANOTHER 2 MORE CAPSULES
     Route: 048
  4. PRILOSEC OTC [Suspect]
     Route: 048
  5. ZANTAC [Concomitant]

REACTIONS (6)
  - Gastrooesophageal reflux disease [Unknown]
  - Cough [Unknown]
  - Haematemesis [Unknown]
  - Vomiting [Unknown]
  - Intentional drug misuse [Unknown]
  - Drug ineffective [Unknown]
